FAERS Safety Report 4733389-4 (Version None)
Quarter: 2005Q3

REPORT INFORMATION
  Report Type: 
  Country: None (occurrence: None)
  Receive Date: 20050801
  Receipt Date: 20050719
  Transmission Date: 20060218
  Serious: Yes (Hospitalization, Other)
  Sender: FDA-Public Use
  Company Number: 2005103569

PATIENT
  Age: 76 Year
  Sex: Female
  Weight: 69.8539 kg

DRUGS (6)
  1. CELEBREX [Suspect]
     Indication: PAIN IN EXTREMITY
     Dosage: 200 MG (200 MG 1 IN 1 D) ORAL
     Route: 048
     Dates: start: 20050601, end: 20050101
  2. TEGRETOL [Concomitant]
  3. LIPITOR [Concomitant]
  4. NORMODYNE [Concomitant]
  5. ZESTRIL [Concomitant]
  6. MORPHINE [Suspect]

REACTIONS (8)
  - FALL [None]
  - FEMUR FRACTURE [None]
  - INTESTINAL OBSTRUCTION [None]
  - OVERDOSE [None]
  - PRURITUS [None]
  - RASH [None]
  - RECALL PHENOMENON [None]
  - URTICARIA [None]
